FAERS Safety Report 7407215-9 (Version None)
Quarter: 2011Q2

REPORT INFORMATION
  Report Type: 
  Country: None (occurrence: None)
  Receive Date: 20110411
  Receipt Date: 20110328
  Transmission Date: 20111010
  Serious: Yes (Other)
  Sender: FDA-Public Use
  Company Number: PHHY2011IT25070

PATIENT
  Age: 60 Year
  Sex: Female

DRUGS (3)
  1. ALENDRONATE SODIUM [Suspect]
     Indication: OSTEONECROSIS
  2. ALENDRONATE SODIUM [Suspect]
     Indication: OSTEOPOROSIS
  3. ZOLEDRONIC ACID [Suspect]
     Indication: OSTEOPOROSIS
     Dosage: 5 MG, ONCE A YEAR

REACTIONS (7)
  - OSTEONECROSIS OF JAW [None]
  - INFECTION [None]
  - PAIN IN JAW [None]
  - ORAL CAVITY FISTULA [None]
  - BONE DISORDER [None]
  - BONE LESION [None]
  - GINGIVAL SWELLING [None]
